FAERS Safety Report 22383528 (Version 1)
Quarter: 2023Q2

REPORT INFORMATION
  Report Type: Spontaneous
  Country: US (occurrence: US)
  Receive Date: 20230530
  Receipt Date: 20230530
  Transmission Date: 20230721
  Serious: Yes (Death, Hospitalization, Other)
  Sender: FDA-Public Use
  Company Number: US-TORRENT-00012685

PATIENT
  Age: 39 Year
  Sex: Male

DRUGS (6)
  1. ACYCLOVIR [Suspect]
     Active Substance: ACYCLOVIR
     Indication: Hepatitis
     Dosage: UNKNOWN
     Route: 065
  2. ANAKINRA [Concomitant]
     Active Substance: ANAKINRA
     Indication: Haemophagocytic lymphohistiocytosis
     Dosage: UNKNOWN
     Route: 065
  3. BARICITINIB [Concomitant]
     Active Substance: BARICITINIB
     Indication: Acute respiratory failure
     Dosage: UNKNOWN
     Route: 065
  4. DEXAMETHASONE [Concomitant]
     Active Substance: DEXAMETHASONE
     Indication: Acute respiratory failure
     Dosage: UNKNOWN
     Route: 065
  5. ACETYLCYSTEINE [Concomitant]
     Active Substance: ACETYLCYSTEINE
     Indication: Product used for unknown indication
     Dosage: UNKNOWN
     Route: 065
  6. REMDESIVIR [Concomitant]
     Active Substance: REMDESIVIR
     Indication: Acute respiratory failure
     Dosage: UNKNOWN
     Route: 065

REACTIONS (2)
  - Drug ineffective [Fatal]
  - Multiple organ dysfunction syndrome [Fatal]
